FAERS Safety Report 6221457-X (Version None)
Quarter: 2009Q2

REPORT INFORMATION
  Report Type: 
  Country: None (occurrence: None)
  Receive Date: 20090610
  Receipt Date: 20090528
  Transmission Date: 20091009
  Serious: Yes (Hospitalization)
  Sender: FDA-Public Use
  Company Number: KR-ELI_LILLY_AND_COMPANY-KR200905005804

PATIENT
  Age: 64 Year
  Sex: Male

DRUGS (1)
  1. HUMALOG MIX 75/25 [Suspect]
     Indication: TYPE 2 DIABETES MELLITUS
     Dosage: 16 IU, DAILY (1/D)
     Route: 058

REACTIONS (2)
  - ROAD TRAFFIC ACCIDENT [None]
  - SKIN LACERATION [None]
